FAERS Safety Report 11360051 (Version 1)
Quarter: 2015Q3

REPORT INFORMATION
  Report Type: Spontaneous
  Country: AT (occurrence: AT)
  Receive Date: 20150810
  Receipt Date: 20150810
  Transmission Date: 20151125
  Serious: Yes (Hospitalization)
  Sender: FDA-Public Use
  Company Number: AT-ASTRAZENECA-2015SE75132

PATIENT
  Age: 48 Year
  Sex: Male

DRUGS (3)
  1. ISOPHANE INSULIN [Concomitant]
     Active Substance: INSULIN NOS
  2. SAROTEN [Concomitant]
     Active Substance: AMITRIPTYLINE
  3. XIGDUO XR [Suspect]
     Active Substance: DAPAGLIFLOZIN PROPANEDIOL\METFORMIN HYDROCHLORIDE
     Route: 048

REACTIONS (1)
  - Ketoacidosis [Unknown]
